FAERS Safety Report 17783780 (Version 1)
Quarter: 2020Q2

REPORT INFORMATION
  Report Type: Report from Study
  Country: CO (occurrence: CO)
  Receive Date: 20200513
  Receipt Date: 20200513
  Transmission Date: 20200714
  Serious: Yes (Hospitalization, Other)
  Sender: FDA-Public Use
  Company Number: CO-ASTELLAS-2020US016089

PATIENT
  Age: 35 Year
  Sex: Female

DRUGS (1)
  1. TACROLIMUS. [Suspect]
     Active Substance: TACROLIMUS
     Indication: RENAL TRANSPLANT
     Dosage: 12 MG, ONCE DAILY (2 CAPSULES OF 5 MG 2 CAPSULES OF 1 MG))
     Route: 048
     Dates: start: 20121226

REACTIONS (9)
  - Pancreatic disorder [Unknown]
  - Toxicity to various agents [Unknown]
  - Abdominal pain [Unknown]
  - Blood creatinine increased [Unknown]
  - Blood glucose increased [Unknown]
  - Respiratory tract infection [Unknown]
  - Pneumonia [Unknown]
  - Kidney infection [Recovered/Resolved]
  - Headache [Unknown]

NARRATIVE: CASE EVENT DATE: 201803
